FAERS Safety Report 5686136-6 (Version None)
Quarter: 2008Q1

REPORT INFORMATION
  Report Type: 
  Country: None (occurrence: None)
  Receive Date: 20080328
  Receipt Date: 20070716
  Transmission Date: 20080703
  Serious: No
  Sender: FDA-Public Use
  Company Number: US-BAYER-US-2007-026373

PATIENT
  Age: 43 Year
  Sex: Female
  Weight: 64 kg

DRUGS (4)
  1. MIRENA [Suspect]
     Indication: CONTRACEPTION
     Route: 015
     Dates: start: 20070501
  2. AVALIDE [Concomitant]
     Dosage: UNIT DOSE: 12.5 MG
     Dates: start: 20070425
  3. TOPROL-XL [Concomitant]
     Dosage: UNIT DOSE: 25 MG
     Dates: start: 20070425
  4. PLAVIX [Concomitant]
     Dosage: UNIT DOSE: 75 MG
     Dates: start: 20070425

REACTIONS (5)
  - ABDOMINAL PAIN [None]
  - DIARRHOEA [None]
  - IUCD COMPLICATION [None]
  - NAUSEA [None]
  - PROCEDURAL PAIN [None]
